FAERS Safety Report 4969390-5 (Version None)
Quarter: 2006Q2

REPORT INFORMATION
  Report Type: 
  Country: None (occurrence: None)
  Receive Date: 20060405
  Receipt Date: 20060330
  Transmission Date: 20061013
  Serious: Yes (Life-Threatening)
  Sender: FDA-Public Use
  Company Number: S06-USA-00880-01

PATIENT
  Age: 17 Year
  Sex: Female

DRUGS (5)
  1. CERVIDIL [Suspect]
     Indication: LABOUR STIMULATION
     Dosage: 10 MG ONCE VG
     Route: 067
     Dates: start: 20060214, end: 20060214
  2. STOOL SOFTNERS (NOS) [Concomitant]
  3. OXYTOCIN [Concomitant]
  4. INTRAVENOUS FLUIDS (NOS) [Concomitant]
  5. ANESTHETICS (NOS) [Concomitant]

REACTIONS (3)
  - CAESAREAN SECTION [None]
  - DRUG EXPOSURE DURING PREGNANCY [None]
  - PREMATURE SEPARATION OF PLACENTA [None]
